FAERS Safety Report 4353663-3 (Version None)
Quarter: 2004Q2

REPORT INFORMATION
  Report Type: 
  Country: None (occurrence: None)
  Receive Date: 20040430
  Receipt Date: 20040416
  Transmission Date: 20050107
  Serious: Yes (Hospitalization)
  Sender: FDA-Public Use
  Company Number: 2004209797CH

PATIENT
  Age: 53 Year
  Sex: Female

DRUGS (5)
  1. CISPLATIN [Suspect]
     Indication: OVARIAN CANCER
     Dosage: SEE IMAGE
     Route: 042
     Dates: start: 19820316, end: 19820316
  2. CISPLATIN [Suspect]
     Indication: OVARIAN CANCER
     Dosage: SEE IMAGE
     Route: 042
     Dates: start: 19811221
  3. SOLU-MEDROL [Suspect]
     Indication: PROPHYLAXIS OF NAUSEA AND VOMITING
     Dosage: 375 MG, 4 CYCLES, IV
     Route: 042
     Dates: start: 19811221, end: 19920316
  4. MELPHALAN [Concomitant]
  5. HEXAMETHYLMELAMINE (ALTRETAMINE) [Concomitant]

REACTIONS (13)
  - BLOOD PRESSURE INCREASED [None]
  - CEREBRAL HAEMORRHAGE [None]
  - COMA [None]
  - DISTURBANCE IN ATTENTION [None]
  - HEADACHE [None]
  - HEMIPARESIS [None]
  - HOT FLUSH [None]
  - LEUKOPENIA [None]
  - METASTASES TO LIVER [None]
  - REFUSAL OF TREATMENT BY PATIENT [None]
  - SOPOR [None]
  - TREATMENT NONCOMPLIANCE [None]
  - VOMITING [None]
